FAERS Safety Report 9394664 (Version 3)
Quarter: 2013Q3

REPORT INFORMATION
  Report Type: Report from Study
  Country: IT (occurrence: IT)
  Receive Date: 20130711
  Receipt Date: 20130917
  Transmission Date: 20140515
  Serious: Yes (Hospitalization, Other)
  Sender: FDA-Public Use
  Company Number: IT-ROCHE-1246483

PATIENT
  Age: 81 Year
  Sex: Female

DRUGS (16)
  1. BEVACIZUMAB [Suspect]
     Indication: ENDOMETRIAL ADENOCARCINOMA
     Dosage: DOSAGE: 15 MG/KG
     Route: 065
     Dates: start: 20130621
  2. CARBOPLATIN [Suspect]
     Indication: ENDOMETRIAL ADENOCARCINOMA
     Dosage: DAILY DOSE AUC5
     Route: 065
     Dates: start: 20130621
  3. PACLITAXEL [Suspect]
     Indication: ENDOMETRIAL ADENOCARCINOMA
     Dosage: DOSAGE: 175 MG/MQ
     Route: 065
     Dates: start: 20130621
  4. OMEPRAZOLO [Concomitant]
     Route: 048
     Dates: start: 20130314
  5. ONDANSETRON [Concomitant]
     Route: 048
     Dates: start: 20130430, end: 20130502
  6. PLASIL [Concomitant]
     Indication: NAUSEA
     Route: 048
  7. PLASIL [Concomitant]
     Route: 030
  8. SOLDESAM [Concomitant]
     Indication: NAUSEA
     Route: 030
  9. PARACETAMOL [Concomitant]
     Indication: PYREXIA
     Route: 048
  10. PARACETAMOL [Concomitant]
     Indication: PAIN
  11. OLPRESS [Concomitant]
     Route: 048
  12. OLPRESS [Concomitant]
     Route: 065
  13. FOSAMAX [Concomitant]
     Route: 048
  14. LASIX [Concomitant]
     Route: 048
  15. NEGRAM [Concomitant]
     Route: 065
  16. VANCOMYCIN [Concomitant]
     Route: 065

REACTIONS (3)
  - Pyrexia [Unknown]
  - Confusional state [Unknown]
  - Retinal artery thrombosis [Unknown]
